FAERS Safety Report 24960329 (Version 2)
Quarter: 2025Q3

REPORT INFORMATION
  Report Type: Report from Study
  Country: CA (occurrence: CA)
  Receive Date: 20250212
  Receipt Date: 20250720
  Transmission Date: 20251021
  Serious: Yes (Other)
  Sender: SANDOZ
  Company Number: CA-002147023-NVSC2022CA114008

PATIENT
  Sex: Female

DRUGS (11)
  1. HYRIMOZ [Suspect]
     Active Substance: ADALIMUMAB-ADAZ
     Indication: Crohn^s disease
     Dosage: 40 MG, Q2W
     Route: 058
     Dates: start: 20220511
  2. HYRIMOZ [Suspect]
     Active Substance: ADALIMUMAB-ADAZ
     Dosage: 40 MG, Q2W
     Route: 058
     Dates: start: 20240905
  3. ALVESCO [Concomitant]
     Active Substance: CICLESONIDE
     Indication: Product used for unknown indication
     Route: 065
  4. BISOPROLOL [Concomitant]
     Active Substance: BISOPROLOL
     Indication: Product used for unknown indication
     Route: 065
  5. Cal D [Concomitant]
     Indication: Product used for unknown indication
     Route: 065
  6. CITALOPRAM [Concomitant]
     Active Substance: CITALOPRAM
     Indication: Product used for unknown indication
     Route: 065
  7. EZETIMIBE [Concomitant]
     Active Substance: EZETIMIBE
     Indication: Product used for unknown indication
     Route: 065
  8. PANTOPRAZOLE [Concomitant]
     Active Substance: PANTOPRAZOLE
     Indication: Product used for unknown indication
     Route: 065
  9. ROSUVASTATIN [Concomitant]
     Active Substance: ROSUVASTATIN
     Indication: Product used for unknown indication
     Route: 065
  10. VALSARTAN [Concomitant]
     Active Substance: VALSARTAN
     Indication: Product used for unknown indication
     Route: 065
  11. VENTOLIN [Concomitant]
     Active Substance: ALBUTEROL SULFATE
     Indication: Product used for unknown indication
     Route: 065

REACTIONS (26)
  - Osteoarthritis [Not Recovered/Not Resolved]
  - Optic neuropathy [Not Recovered/Not Resolved]
  - Productive cough [Not Recovered/Not Resolved]
  - Haemorrhoid operation [Unknown]
  - Rectal prolapse repair [Unknown]
  - Crohn^s disease [Recovered/Resolved]
  - Arthralgia [Not Recovered/Not Resolved]
  - Arthralgia [Recovered/Resolved]
  - Haematochezia [Recovered/Resolved]
  - Product dose omission issue [Not Recovered/Not Resolved]
  - Contusion [Unknown]
  - Finger deformity [Unknown]
  - Feeling cold [Unknown]
  - Rhinorrhoea [Unknown]
  - Pain in extremity [Unknown]
  - Constipation [Unknown]
  - Peripheral swelling [Unknown]
  - Erythema [Recovering/Resolving]
  - Asthma [Recovering/Resolving]
  - Diarrhoea [Unknown]
  - Injection site haemorrhage [Unknown]
  - Bronchitis [Recovering/Resolving]
  - Laryngitis [Recovering/Resolving]
  - Cough [Unknown]
  - Rash [Recovered/Resolved]
  - Sinusitis [Unknown]
